FAERS Safety Report 18861597 (Version 4)
Quarter: 2021Q1

REPORT INFORMATION
  Report Type: Report from Study
  Country: None (occurrence: AE)
  Receive Date: 20210209
  Receipt Date: 20210222
  Transmission Date: 20210420
  Serious: Yes (Hospitalization)
  Sender: FDA-Public Use
  Company Number: AE-ABBVIE-21K-166-3763781-00

PATIENT
  Age: 81 Year
  Sex: Male
  Weight: 89 kg

DRUGS (5)
  1. SYNDOPA [Concomitant]
     Active Substance: LEVODOPA
     Indication: PARKINSON^S DISEASE
     Route: 048
     Dates: start: 20200424
  2. MADOPAR [Concomitant]
     Active Substance: BENSERAZIDE HYDROCHLORIDE\LEVODOPA
     Indication: PARKINSON^S DISEASE
     Route: 048
     Dates: start: 20200315
  3. DUODOPA [Suspect]
     Active Substance: CARBIDOPA\LEVODOPA
     Indication: PARKINSON^S DISEASE
     Route: 050
     Dates: start: 20201205
  4. ROTIGOTINE [Concomitant]
     Active Substance: ROTIGOTINE
     Indication: PARKINSON^S DISEASE
     Dosage: ROTIGOTINE PATCH
     Route: 062
     Dates: start: 20210110
  5. DUODOPA [Suspect]
     Active Substance: CARBIDOPA\LEVODOPA
     Dosage: AM DOSE?20ML CONT DOSE 7.5ML EXTRA DOSE?1ML, 16 HOURS/DAY
     Route: 050
     Dates: start: 20210118, end: 20210127

REACTIONS (7)
  - Urinary tract infection [Not Recovered/Not Resolved]
  - Device dislocation [Unknown]
  - Hypophagia [Unknown]
  - Therapy non-responder [Unknown]
  - Anaemia [Not Recovered/Not Resolved]
  - Decreased activity [Unknown]
  - Pallor [Unknown]

NARRATIVE: CASE EVENT DATE: 2021
